FAERS Safety Report 4940778-1 (Version None)
Quarter: 2006Q1

REPORT INFORMATION
  Report Type: 
  Country: None (occurrence: None)
  Receive Date: 20060307
  Receipt Date: 20060227
  Transmission Date: 20060701
  Serious: Yes (Hospitalization)
  Sender: FDA-Public Use
  Company Number: 13579

PATIENT
  Age: 57 Year
  Sex: Male
  Weight: 46 kg

DRUGS (7)
  1. DOXORUBICIN HCL [Suspect]
     Indication: LUNG NEOPLASM MALIGNANT
     Dosage: 40 MG/M2 Q21DAYS IV
     Route: 042
     Dates: start: 20050926
  2. VINCRISTINE [Suspect]
     Indication: LUNG NEOPLASM MALIGNANT
     Dosage: 1.4 MG/M2 IV
     Route: 042
     Dates: start: 20050926
  3. CYCLOPHOSPHAMIDE [Suspect]
     Indication: LUNG NEOPLASM MALIGNANT
     Dosage: 750 MG/M2 IV
     Route: 042
     Dates: start: 20050926
  4. ACETAMINOPHEN [Concomitant]
  5. OMEPRAZOLE [Concomitant]
  6. CYCLIZINE [Concomitant]
  7. DEXAMETHASONE TAB [Concomitant]

REACTIONS (2)
  - NEUTROPENIC SEPSIS [None]
  - PANCYTOPENIA [None]
